FAERS Safety Report 13352761 (Version 3)
Quarter: 2018Q1

REPORT INFORMATION
  Report Type: Spontaneous
  Country: IT (occurrence: IT)
  Receive Date: 20170320
  Receipt Date: 20180301
  Transmission Date: 20180508
  Serious: Yes (Other)
  Sender: FDA-Public Use
  Company Number: IT-MYLANLABS-2017M1016684

PATIENT
  Age: 73 Year
  Sex: Female

DRUGS (1)
  1. LAMIVUDINE. [Suspect]
     Active Substance: LAMIVUDINE
     Indication: PRODUCT USED FOR UNKNOWN INDICATION
     Dosage: 100 MG, QD

REACTIONS (4)
  - Dyspnoea exertional [Unknown]
  - Anaemia [Unknown]
  - Toxicity to various agents [Unknown]
  - Asthenia [Unknown]

NARRATIVE: CASE EVENT DATE: 20161027
